FAERS Safety Report 17673627 (Version 1)
Quarter: 2020Q2

REPORT INFORMATION
  Report Type: Spontaneous
  Country: GB (occurrence: GB)
  Receive Date: 20200415
  Receipt Date: 20200415
  Transmission Date: 20200714
  Serious: Yes (Hospitalization)
  Sender: FDA-Public Use
  Company Number: GB-ANIPHARMA-2020-UK-000081

PATIENT
  Age: 83 Year
  Sex: Female

DRUGS (21)
  1. LEVOTHYROXINE. [Concomitant]
     Active Substance: LEVOTHYROXINE
     Dosage: 100 UG QD
     Route: 048
  2. SALBUTAMOL [Concomitant]
     Active Substance: ALBUTEROL
     Dosage: UNK
     Route: 050
  3. TIOTROPIUM [Concomitant]
     Active Substance: TIOTROPIUM
     Dosage: 18 UG QD
     Route: 050
  4. SERTRALINE [Suspect]
     Active Substance: SERTRALINE HYDROCHLORIDE
     Dosage: 50 MG BID
     Route: 048
  5. FUROSEMIDE. [Suspect]
     Active Substance: FUROSEMIDE
     Dosage: 40 MG QD
     Route: 048
     Dates: end: 20200215
  6. FLUTICASONE. [Concomitant]
     Active Substance: FLUTICASONE
     Dosage: EVERY DAY
     Route: 050
  7. METFORMIN [Suspect]
     Active Substance: METFORMIN HYDROCHLORIDE
     Dosage: 1000 MG QD
     Route: 048
     Dates: end: 20200215
  8. COCODAMOL [Suspect]
     Active Substance: ACETAMINOPHEN\CODEINE PHOSPHATE
     Dosage: 30MG/500MG ONE OR TWO, FOUR TIMES A DAY, WHEN REQUIRED
     Route: 048
     Dates: end: 20200215
  9. DORZOLAMIDE [Concomitant]
     Active Substance: DORZOLAMIDE
     Dosage: 4 GTT QD
     Route: 050
  10. ALENDRONIC ACID [Concomitant]
     Active Substance: ALENDRONIC ACID
     Dosage: 70 MG WEEK
     Route: 048
  11. CANDESARTAN CILEXETIL. [Suspect]
     Active Substance: CANDESARTAN CILEXETIL
     Indication: PRODUCT USED FOR UNKNOWN INDICATION
     Dosage: 4 MG QD
     Route: 048
     Dates: end: 20200215
  12. DIGOXIN. [Concomitant]
     Active Substance: DIGOXIN
     Dosage: 125 UG QD
     Route: 048
     Dates: start: 20200215, end: 20200219
  13. CARBOCISTEINE [Concomitant]
     Active Substance: CARBOCYSTEINE
     Dosage: 2250 MG QD
     Route: 048
  14. ATORVASTATIN [Concomitant]
     Active Substance: ATORVASTATIN
     Dosage: 40 MG QD
     Route: 048
  15. BISOPROLOL [Concomitant]
     Active Substance: BISOPROLOL
     Dosage: 10 MG QD
     Route: 048
  16. ADCAL-D3 [Concomitant]
     Active Substance: CALCIUM CARBONATE\CHOLECALCIFEROL
     Dosage: EVERY DAY
     Route: 048
  17. TRAVOPROST. [Concomitant]
     Active Substance: TRAVOPROST
     Dosage: 2 GTT QD
     Route: 050
  18. APIXABAN [Concomitant]
     Active Substance: APIXABAN
     Dosage: 10 MG QD
     Route: 048
  19. PIOGLITAZONE) [Suspect]
     Active Substance: PIOGLITAZONE
     Dosage: 15 MG QD
     Route: 048
     Dates: end: 20200215
  20. GLICLAZIDE [Suspect]
     Active Substance: GLICLAZIDE
     Dosage: 80 MILLIGRAM IN THE MORNING AND 40 MILLIGRAM AT TEATIME
     Route: 048
     Dates: end: 20200215
  21. SALMETEROL [Concomitant]
     Active Substance: SALMETEROL
     Dosage: EVERY DAY
     Route: 050

REACTIONS (7)
  - Hypoglycaemia [Recovering/Resolving]
  - Urine output decreased [Unknown]
  - Confusional state [Recovered/Resolved]
  - Hyponatraemia [Recovered/Resolved]
  - Dehydration [Unknown]
  - Constipation [Recovered/Resolved]
  - Acute kidney injury [Recovered/Resolved]

NARRATIVE: CASE EVENT DATE: 20200215
